FAERS Safety Report 4369613-X (Version None)
Quarter: 2004Q2

REPORT INFORMATION
  Report Type: 
  Country: None (occurrence: None)
  Receive Date: 20040526
  Receipt Date: 20040209
  Transmission Date: 20050107
  Serious: Yes (Hospitalization, Other)
  Sender: FDA-Public Use
  Company Number: USA040258832

PATIENT
  Age: 45 Year
  Sex: Male
  Weight: 86 kg

DRUGS (4)
  1. ZYPREXA [Suspect]
     Indication: BIPOLAR DISORDER
     Dosage: 10 MG/DAY
  2. RISPERIDONE [Concomitant]
  3. ZOLOFT [Concomitant]
  4. TRAZODONE HCL [Concomitant]

REACTIONS (1)
  - HYPERGLYCAEMIA [None]
